FAERS Safety Report 6717896-0 (Version None)
Quarter: 2010Q2

REPORT INFORMATION
  Report Type: 
  Country: None (occurrence: None)
  Receive Date: 20100510
  Receipt Date: 20051108
  Transmission Date: 20101027
  Serious: Yes (Other)
  Sender: FDA-Public Use
  Company Number: PHHY2005BR02161

PATIENT
  Age: 47 Year
  Sex: Female

DRUGS (1)
  1. DIOVAN [Suspect]
     Dosage: 320 MG
     Route: 048

REACTIONS (3)
  - DYSPEPSIA [None]
  - GASTRIC DISORDER [None]
  - HEADACHE [None]
